FAERS Safety Report 25352329 (Version 1)
Quarter: 2025Q2

REPORT INFORMATION
  Report Type: Spontaneous
  Country: US (occurrence: None)
  Receive Date: 20250522
  Receipt Date: 20250522
  Transmission Date: 20250716
  Serious: No
  Sender: FDA-CTU
  Company Number: None

PATIENT
  Age: 72 Year
  Sex: Female

DRUGS (3)
  1. SERTRALINE HYDROCHLORIDE [Suspect]
     Active Substance: SERTRALINE HYDROCHLORIDE
     Indication: Insomnia
     Dosage: FREQUENCY : DAILY;?
     Route: 048
     Dates: start: 20250509
  2. SERTRALINE HYDROCHLORIDE [Suspect]
     Active Substance: SERTRALINE HYDROCHLORIDE
     Indication: Anxiety
  3. HYDROXYZINE HYDROCHLORIDE [Concomitant]
     Active Substance: HYDROXYZINE HYDROCHLORIDE
     Dates: start: 20250509

REACTIONS (2)
  - Dyskinesia [None]
  - Tremor [None]

NARRATIVE: CASE EVENT DATE: 20250521
